FAERS Safety Report 25519515 (Version 2)
Quarter: 2025Q4

REPORT INFORMATION
  Report Type: Spontaneous
  Country: EU (occurrence: EU)
  Receive Date: 20250704
  Receipt Date: 20251005
  Transmission Date: 20260118
  Serious: Yes (Death, Other)
  Sender: JAZZ
  Company Number: EU-JAZZ PHARMACEUTICALS-2025-ES-010882

PATIENT
  Age: 61 Year
  Weight: 50 kg

DRUGS (2)
  1. DEFITELIO [Suspect]
     Active Substance: DEFIBROTIDE SODIUM
     Indication: Venoocclusive liver disease
  2. AMBISOME [Concomitant]
     Active Substance: AMPHOTERICIN B
     Indication: Fungal infection
     Dosage: UNK

REACTIONS (5)
  - Subarachnoid haemorrhage [Fatal]
  - Multiple organ dysfunction syndrome [Fatal]
  - Candida infection [Unknown]
  - Staphylococcal infection [Unknown]
  - Off label use [Unknown]
